FAERS Safety Report 9751320 (Version 1)
Quarter: 2013Q4

REPORT INFORMATION
  Report Type: Spontaneous
  Country: US (occurrence: US)
  Receive Date: 20131212
  Receipt Date: 20131212
  Transmission Date: 20140711
  Serious: No
  Sender: FDA-Public Use
  Company Number: US-BIOGENIDEC-2013BI097678

PATIENT
  Age: 61 Year
  Sex: Female

DRUGS (10)
  1. TECFIDERA [Suspect]
     Indication: PRODUCT USED FOR UNKNOWN INDICATION
     Route: 048
  2. LEVEMIR [Concomitant]
  3. NOVOLOG [Concomitant]
  4. VITAMIN B-12 [Concomitant]
  5. VITAMIN D [Concomitant]
  6. ASPIRIN LOW [Concomitant]
  7. NEURONTIN [Concomitant]
  8. PROTONIX [Concomitant]
  9. TRADJENTA [Concomitant]
  10. COLACE [Concomitant]

REACTIONS (4)
  - Flatulence [Unknown]
  - Asthenia [Unknown]
  - Fall [Recovered/Resolved]
  - Nausea [Unknown]
